FAERS Safety Report 4555674-1 (Version None)
Quarter: 2005Q1

REPORT INFORMATION
  Report Type: 
  Country: None (occurrence: None)
  Receive Date: 20050105
  Receipt Date: 20040930
  Transmission Date: 20050727
  Serious: No
  Sender: FDA-Public Use
  Company Number: SU-2004-002716

PATIENT
  Age: 58 Year
  Sex: Male
  Weight: 102.5129 kg

DRUGS (7)
  1. BENICAR HCT [Suspect]
     Indication: HYPERTENSION
     Dosage: 40.125 MG QD PO
     Route: 048
     Dates: start: 20040811, end: 20040922
  2. DONNATAL [Concomitant]
  3. MULTI-VITAMINS [Concomitant]
  4. PROSCAR [Concomitant]
  5. VITAMIN E [Concomitant]
  6. ATIVAN [Concomitant]
  7. NORMODYNE [Concomitant]

REACTIONS (1)
  - BLOOD GLUCOSE INCREASED [None]
